FAERS Safety Report 13128962 (Version 3)
Quarter: 2019Q3

REPORT INFORMATION
  Report Type: Report from Study
  Country: CA (occurrence: CA)
  Receive Date: 20170119
  Receipt Date: 20190930
  Transmission Date: 20191004
  Serious: Yes (Other)
  Sender: FDA-Public Use
  Company Number: CA-AMGEN-CANSL2017007665

PATIENT
  Age: 64 Year
  Sex: Female

DRUGS (2)
  1. PROLIA [Suspect]
     Active Substance: DENOSUMAB
     Indication: OSTEOPOROSIS POSTMENOPAUSAL
     Dosage: UNK
     Route: 065
     Dates: start: 20160107
  2. CORTISONE [Concomitant]
     Active Substance: CORTISONE
     Dosage: 10 MG, QD

REACTIONS (6)
  - Injection site pain [Recovering/Resolving]
  - Neck pain [Recovering/Resolving]
  - Immunosuppression [Unknown]
  - Arthritis [Unknown]
  - Fibromyalgia [Unknown]
  - Pain in extremity [Recovering/Resolving]

NARRATIVE: CASE EVENT DATE: 20170112
